FAERS Safety Report 8919176 (Version 1)
Quarter: 2012Q4

REPORT INFORMATION
  Report Type: Spontaneous
  Country: KR (occurrence: None)
  Receive Date: 20121114
  Receipt Date: 20121114
  Transmission Date: 20130627
  Serious: No
  Sender: FDA-Public Use
  Company Number: FK201203273

PATIENT
  Age: 63 Year
  Sex: Male

DRUGS (12)
  1. DEXAMETHASONE INJECTION (MANUFACTURER UNKNOWN)(DEXAMETHASONE SODIUM PHOSPHATE)(DEXAMETHASONE SODIUM^PHOSPHATE) [Suspect]
     Indication: TUBERCULOSIS
  2. DEXAMETHASONE INJECTION (MANUFACTURER UNKNOWN)(DEXAMETHASONE SODIUM PHOSPHATE)(DEXAMETHASONE SODIUM^PHOSPHATE) [Suspect]
     Indication: TUBERCULOSIS
  3. DEXAMETHASONE INJECTION (MANUFACTURER UNKNOWN)(DEXAMETHASONE SODIUM PHOSPHATE)(DEXAMETHASONE SODIUM^PHOSPHATE) [Suspect]
     Indication: TUBERCULOSIS
  4. DEXAMETHASONE INJECTION (MANUFACTURER UNKNOWN)(DEXAMETHASONE SODIUM PHOSPHATE)(DEXAMETHASONE SODIUM^PHOSPHATE) [Suspect]
     Indication: TUBERCULOSIS
  5. DEXAMETHASONE INJECTION (MANUFACTURER UNKNOWN)(DEXAMETHASONE SODIUM PHOSPHATE)(DEXAMETHASONE SODIUM^PHOSPHATE) [Suspect]
     Indication: TUBERCULOSIS
  6. DEXAMETHASONE INJECTION (MANUFACTURER UNKNOWN)(DEXAMETHASONE SODIUM PHOSPHATE)(DEXAMETHASONE SODIUM^PHOSPHATE) [Suspect]
     Indication: TUBERCULOSIS
  7. ISONIAZID [Suspect]
     Indication: TUBERCULOSIS
  8. RIFAMPIN [Suspect]
     Indication: TUBERCULOSIS
  9. ETHAMBUTOL [Suspect]
     Indication: TUBERCULOSIS
  10. PYRAZINAMIDE [Suspect]
     Indication: TUBERCULOSIS
  11. STREPTOMYCIN (STREPTOMYCIN) [Concomitant]
  12. MOXIFLOXACIN (MOXFLOXACIN) [Concomitant]

REACTIONS (11)
  - Paradoxical drug reaction [None]
  - Somnolence [None]
  - Mental status changes [None]
  - Respiratory distress [None]
  - Hydrocephalus [None]
  - Gastrointestinal disorder [None]
  - Cognitive disorder [None]
  - Memory impairment [None]
  - Ataxia [None]
  - Somnolence [None]
  - Nuclear magnetic resonance imaging brain abnormal [None]
